FAERS Safety Report 8545293-4 (Version None)
Quarter: 2012Q3

REPORT INFORMATION
  Report Type: 
  Country: None (occurrence: None)
  Receive Date: 20120727
  Receipt Date: 20120718
  Transmission Date: 20120928
  Serious: Yes (Hospitalization)
  Sender: FDA-Public Use
  Company Number: FR-B.I. PHARMACEUTICALS,INC./RIDGEFIELD-2012-FF-00957FF

PATIENT
  Sex: Male

DRUGS (4)
  1. TAMSULOSIN HCL [Suspect]
     Dosage: 0.4 MG
     Route: 048
     Dates: end: 20120315
  2. ATACAND [Suspect]
     Dosage: 4 MG
     Route: 048
     Dates: end: 20120315
  3. ALENDRONATE SODIUM [Suspect]
     Dosage: 70 MG
     Route: 048
     Dates: end: 20120315
  4. LASIX [Suspect]
     Dosage: 20 MG
     Route: 048

REACTIONS (2)
  - PEMPHIGOID [None]
  - TOXIC SKIN ERUPTION [None]
